FAERS Safety Report 7097045-2 (Version None)
Quarter: 2010Q4

REPORT INFORMATION
  Report Type: 
  Country: None (occurrence: None)
  Receive Date: 20101111
  Receipt Date: 20101028
  Transmission Date: 20110411
  Serious: No
  Sender: FDA-Public Use
  Company Number: US-JNJFOC-20101102531

PATIENT
  Age: 21 Year
  Sex: Male
  Weight: 108.86 kg

DRUGS (2)
  1. INVEGA SUSTENNA [Suspect]
     Indication: SCHIZOAFFECTIVE DISORDER
     Route: 030
  2. FLONASE [Concomitant]
     Indication: ILL-DEFINED DISORDER
     Route: 055

REACTIONS (1)
  - WEIGHT INCREASED [None]
